FAERS Safety Report 15530232 (Version 2)
Quarter: 2018Q4

REPORT INFORMATION
  Report Type: Spontaneous
  Country: US (occurrence: US)
  Receive Date: 20181018
  Receipt Date: 20181206
  Transmission Date: 20190205
  Serious: Yes (Hospitalization)
  Sender: FDA-Public Use
  Company Number: US-STRONGBRIDGE BIOPHARMA-2018-STR-000352

PATIENT
  Sex: Male

DRUGS (1)
  1. KEVEYIS [Suspect]
     Active Substance: DICHLORPHENAMIDE
     Indication: FAMILIAL PERIODIC PARALYSIS
     Dosage: 1 DF, BID
     Route: 048
     Dates: start: 20170614

REACTIONS (2)
  - Hospitalisation [Unknown]
  - Hospitalisation [Unknown]

NARRATIVE: CASE EVENT DATE: 20181012
